FAERS Safety Report 12585181 (Version 2)
Quarter: 2016Q3

REPORT INFORMATION
  Report Type: Report from Study
  Country: CA (occurrence: CA)
  Receive Date: 20160723
  Receipt Date: 20160817
  Transmission Date: 20161109
  Serious: Yes (Life-Threatening, Hospitalization, Other)
  Sender: FDA-Public Use
  Company Number: CA-009507513-1607CAN007830

PATIENT
  Age: 72 Year
  Sex: Female
  Weight: 69 kg

DRUGS (20)
  1. NITROGLYCERIN. [Concomitant]
     Active Substance: NITROGLYCERIN
     Dosage: 0.4MG/SPRAY, TRANSLINGUAL SPRAY -1, SPRAY SL, Q5 MIN X 3, GO TO ER IF CHEST PAIN PERSISTS
     Dates: start: 20160407
  2. ZOPICLONE [Concomitant]
     Active Substance: ZOPICLONE
     Dosage: 7.5 MG, QHS, EVERY DAY AT BED TIME,PRN
     Dates: start: 20160202
  3. GABAPENTIN. [Concomitant]
     Active Substance: GABAPENTIN
     Dosage: 300 MG, QHS, EVERYDAY AT BED TIME
     Dates: start: 20150917
  4. CYCLOBENZAPR [Concomitant]
     Dosage: 10 MG, TID,PRN
     Dates: start: 20140915
  5. ASAPHEN [Concomitant]
     Active Substance: ASPIRIN
     Dosage: 81 MG, QD
     Dates: start: 20131121
  6. BISOPROLOL [Concomitant]
     Active Substance: BISOPROLOL
     Dosage: 1.5 DF, QD
     Dates: start: 20160524
  7. NITRO-DUR [Concomitant]
     Active Substance: NITROGLYCERIN
     Dosage: 0.2 MG,PER HOUR, TRANSDERMAL 24 HOUR PATCH (ON QAM, OFF QHS), QD
     Route: 062
     Dates: start: 20160614
  8. ALVESCO [Concomitant]
     Active Substance: CICLESONIDE
     Dosage: UNK, QD
     Dates: start: 20160517
  9. EZETROL [Suspect]
     Active Substance: EZETIMIBE
     Indication: BLOOD CHOLESTEROL
     Dosage: 10 MG, DAILY
     Route: 048
     Dates: start: 201509
  10. VENTOLIN HFA [Concomitant]
     Active Substance: ALBUTEROL SULFATE
     Dosage: 1 DF, Q4H, PRN, AEROSOL INHALER 1-2 PUFF
     Dates: start: 20160517
  11. SYNTHROID [Concomitant]
     Active Substance: LEVOTHYROXINE SODIUM
     Dosage: 88 MICROGRAM, QD, SHE DOES NOT TAKE IT ON SUNDAYS
     Dates: start: 20160517
  12. FOLIC ACID. [Concomitant]
     Active Substance: FOLIC ACID
     Dosage: 5 MG, QD
     Dates: start: 20160517
  13. TECTA [Concomitant]
     Active Substance: PANTOPRAZOLE MAGNESIUM
     Dosage: BID,SHE WILL REDUCE TO 1 TAB DAILY 19-MAY-2016
     Dates: start: 20160517
  14. ULTRAVATE [Concomitant]
     Active Substance: HALOBETASOL PROPIONATE
     Dosage: QHS EVERYDAY AT BED TIME
     Dates: start: 20160517
  15. EFFEXOR XR [Concomitant]
     Active Substance: VENLAFAXINE HYDROCHLORIDE
     Dosage: UNK, QD
     Dates: start: 20160202
  16. CRESTOR [Concomitant]
     Active Substance: ROSUVASTATIN CALCIUM
     Dosage: 10 MG, QHS, EVERY DAY AT BED TIME, 17-06-2016 INCREASED TO 20 MG QHS
     Dates: start: 20160202
  17. ZOSTAVAX II [Concomitant]
     Route: 058
     Dates: start: 20151215, end: 20151215
  18. CYANOCOBALAMIN. [Concomitant]
     Active Substance: CYANOCOBALAMIN
     Dosage: 1000 MICRO-G/ML, MONTHLY, 1 CC WEEKLYFOR THE FIRST 4 WEEKS
     Dates: start: 20150202
  19. ROSUVASTATIN. [Concomitant]
     Active Substance: ROSUVASTATIN
     Dosage: 10 MG, DAILY
  20. DOXYCYCLINE HYCLATE. [Concomitant]
     Active Substance: DOXYCYCLINE HYCLATE
     Dosage: 100 MG, BID, 1 TABLET BID ON DAY1, THEN ONCE DAILY FOR 7 DAYS M:QS
     Dates: start: 20160301

REACTIONS (4)
  - Malaise [Unknown]
  - Angina unstable [Unknown]
  - Stent placement [Unknown]
  - Cardiac operation [Unknown]

NARRATIVE: CASE EVENT DATE: 201606
